FAERS Safety Report 8342630-0 (Version None)
Quarter: 2012Q2

REPORT INFORMATION
  Report Type: 
  Country: None (occurrence: None)
  Receive Date: 20120508
  Receipt Date: 20120426
  Transmission Date: 20120825
  Serious: No
  Sender: FDA-Public Use
  Company Number: US-BIOGENIDEC-2012BI015519

PATIENT
  Sex: Female

DRUGS (9)
  1. TYSABRI [Suspect]
     Indication: MULTIPLE SCLEROSIS
     Route: 042
     Dates: start: 20110902
  2. SIMVASTATIN [Concomitant]
     Indication: TYPE V HYPERLIPIDAEMIA
  3. AMPYRA [Concomitant]
     Indication: MULTIPLE SCLEROSIS
  4. ASPIRIN [Concomitant]
  5. DETROL LA [Concomitant]
     Indication: MICTURITION URGENCY
  6. PROVIGIL [Concomitant]
  7. BACLOFEN [Concomitant]
     Indication: MULTIPLE SCLEROSIS
     Dates: start: 20111114
  8. FENOFIBRATE [Concomitant]
     Indication: TYPE V HYPERLIPIDAEMIA
  9. SYNTHROID [Concomitant]
     Indication: HYPOTHYROIDISM

REACTIONS (4)
  - MOTOR DYSFUNCTION [None]
  - FATIGUE [None]
  - GAIT DISTURBANCE [None]
  - BALANCE DISORDER [None]
